FAERS Safety Report 13775768 (Version 1)
Quarter: 2017Q3

REPORT INFORMATION
  Report Type: Spontaneous
  Country: US (occurrence: US)
  Receive Date: 20170721
  Receipt Date: 20170721
  Transmission Date: 20171127
  Serious: Yes (Life-Threatening, Hospitalization)
  Sender: FDA-Public Use
  Company Number: None

PATIENT
  Age: 31 Year
  Sex: Female
  Weight: 57 kg

DRUGS (2)
  1. IRON DEXTRAN (52544-931-07) 50MG/ML SOLUTION-2ML VIAL ACTAVIS PHARMA, INC [Suspect]
     Active Substance: IRON DEXTRAN
     Indication: IRON DEFICIENCY ANAEMIA
     Dosage: 25 MG (0.5 ML) ONCE IV
     Route: 042
     Dates: start: 20170302
  2. SODIUM CHLORIDE (0338-0049-41) 0.9% BAXTER [Suspect]
     Active Substance: SODIUM CHLORIDE
     Route: 042
     Dates: start: 20170302

REACTIONS (7)
  - Angioedema [None]
  - Infusion related reaction [None]
  - Lip swelling [None]
  - Pruritus [None]
  - Lip oedema [None]
  - Throat irritation [None]
  - Dysphagia [None]

NARRATIVE: CASE EVENT DATE: 20170302
